FAERS Safety Report 8899242 (Version 1)
Quarter: 2012Q4

REPORT INFORMATION
  Report Type: 
  Country: US (occurrence: US)
  Receive Date: 20121108
  Receipt Date: 20121108
  Transmission Date: 20130627
  Serious: No
  Sender: FDA-Public Use
  Company Number: US-AMGEN-USASP2012035363

PATIENT
  Age: 47 Year
  Sex: Female
  Weight: 86.17 kg

DRUGS (9)
  1. ENBREL [Suspect]
     Indication: PSORIATIC ARTHROPATHY
     Dosage: 50 mg, qwk
     Route: 058
  2. AZOR                               /00595201/ [Concomitant]
     Route: 048
  3. HYDROCHLOROTH [Concomitant]
     Dosage: 12.5 mg, UNK
     Route: 048
  4. PRAVASTATIN [Concomitant]
     Dosage: 10 mg, UNK
     Route: 048
  5. LEXAPRO [Concomitant]
     Dosage: 10 mg, UNK
     Route: 048
  6. ASA [Concomitant]
     Dosage: 81 mg, UNK
     Route: 048
  7. VITAMIN D /00107901/ [Concomitant]
     Route: 048
  8. NAPROXEN [Concomitant]
     Dosage: 375 mg, UNK
     Route: 048
  9. FISH OIL [Concomitant]
     Route: 048

REACTIONS (1)
  - Injection site bruising [Unknown]
